FAERS Safety Report 4694128-9 (Version None)
Quarter: 2005Q2

REPORT INFORMATION
  Report Type: 
  Country: None (occurrence: None)
  Receive Date: 20050617
  Receipt Date: 20050617
  Transmission Date: 20051028
  Serious: Yes (Death)
  Sender: FDA-Public Use
  Company Number: None

PATIENT
  Sex: Female
  Weight: 44.2 kg

DRUGS (4)
  1. ZOSUQUIDAR [Suspect]
     Indication: ACUTE MYELOID LEUKAEMIA
     Dosage: 550 MG/DAY ON DAYS 1, 2, 3
     Dates: start: 20041029
  2. PLACEBO [Suspect]
  3. CYTARABINE [Suspect]
     Dosage: 100 MG/M2/DAY ON DAYS 1-7
  4. DAUNORUBICIN HCL [Suspect]
     Dosage: 45 MG/M2/DAY ON DAYS 1, 2, 3

REACTIONS (1)
  - DEATH [None]
